FAERS Safety Report 23591567 (Version 1)
Quarter: 2024Q1

REPORT INFORMATION
  Report Type: Spontaneous
  Country: US (occurrence: US)
  Receive Date: 20240304
  Receipt Date: 20240304
  Transmission Date: 20240410
  Serious: No
  Sender: FDA-Public Use
  Company Number: US-SA-SAC20240227000808

PATIENT
  Age: 22 Year
  Sex: Female

DRUGS (3)
  1. DUPIXENT [Suspect]
     Active Substance: DUPILUMAB
     Indication: Asthma
     Dosage: 300 MG, QOW
     Route: 058
     Dates: start: 20230608
  2. ALBUTEROL [Concomitant]
     Active Substance: ALBUTEROL
  3. EPIPEN [Concomitant]
     Active Substance: EPINEPHRINE

REACTIONS (4)
  - Rash [Recovered/Resolved]
  - Asthma [Unknown]
  - Product dose omission issue [Unknown]
  - Drug ineffective [Unknown]
